FAERS Safety Report 10996761 (Version 1)
Quarter: 2015Q2

REPORT INFORMATION
  Report Type: Spontaneous
  Country: US (occurrence: None)
  Receive Date: 20150402
  Receipt Date: 20150402
  Transmission Date: 20150821
  Serious: Yes (Other)
  Sender: FDA-Public Use
  Company Number: 2014-US-001787

PATIENT
  Age: 13 Year
  Sex: Female

DRUGS (1)
  1. CLOZAPINE USP, ODT (CLOZAPINE, USP) TABLET, MG [Suspect]
     Active Substance: CLOZAPINE
     Indication: BIPOLAR I DISORDER
     Dosage: 200-450 MG, QD, ORAL
     Route: 048
     Dates: start: 20130507, end: 201402

REACTIONS (1)
  - Overdose [None]

NARRATIVE: CASE EVENT DATE: 20140207
